FAERS Safety Report 9321793 (Version 2)
Quarter: 2013Q3

REPORT INFORMATION
  Report Type: Spontaneous
  Country: CL (occurrence: CL)
  Receive Date: 20130531
  Receipt Date: 20130816
  Transmission Date: 20140515
  Serious: Yes (Other)
  Sender: FDA-Public Use
  Company Number: CL-009507513-2011SP040683

PATIENT
  Age: 21 Year
  Sex: Female
  Weight: 58 kg

DRUGS (9)
  1. NUVARING [Suspect]
     Indication: CONTRACEPTION
     Dosage: 0.120MG/0.015 MG , QM
     Route: 067
     Dates: start: 201008, end: 20100825
  2. NUVARING [Suspect]
     Dosage: 0.120MG/0.015 MG, QM
     Route: 067
     Dates: start: 20110803, end: 20110825
  3. NUVARING [Suspect]
     Dosage: 0.120MG/0.015 MG, QM
     Route: 067
     Dates: start: 20111124, end: 20111215
  4. NUVARING [Suspect]
     Dosage: 0.120MG/0.015 MG, QM
     Route: 067
     Dates: start: 20111223, end: 20120112
  5. NUVARING [Suspect]
     Dosage: 0.120MG/0.015 MG
     Route: 067
     Dates: end: 20130504
  6. NUVARING [Suspect]
     Dosage: 0.120MG/0.015 MG
     Route: 067
     Dates: start: 20130504, end: 20130601
  7. NUVARING [Suspect]
     Dosage: 0.120MG/0.015 MG
     Route: 067
     Dates: start: 20130608, end: 20130706
  8. NUVARING [Suspect]
     Dosage: 0.120MG/0.015 MG ,
     Route: 067
     Dates: start: 20130713
  9. NUVARING [Suspect]
     Dosage: UNK

REACTIONS (12)
  - Ovarian cancer [Unknown]
  - Surgery [Unknown]
  - Premenstrual pain [Unknown]
  - Incorrect drug administration duration [Unknown]
  - Mood altered [Unknown]
  - Inappropriate schedule of drug administration [Unknown]
  - Withdrawal bleed [Recovered/Resolved]
  - Metrorrhagia [Recovered/Resolved]
  - Metrorrhagia [Unknown]
  - Incorrect drug administration duration [Unknown]
  - Incorrect drug administration duration [Unknown]
  - Incorrect drug administration duration [Unknown]
